FAERS Safety Report 8848030 (Version 3)
Quarter: 2012Q4

REPORT INFORMATION
  Report Type: 
  Country: CH (occurrence: CH)
  Receive Date: 20121018
  Receipt Date: 20121108
  Transmission Date: 20130627
  Serious: Yes (Other)
  Sender: FDA-Public Use
  Company Number: CH-PFIZER INC-2012214093

PATIENT
  Age: 65 Year
  Sex: Female

DRUGS (2)
  1. PANTOPRAZOLE [Suspect]
     Indication: GASTROESOPHAGEAL REFLUX
     Dosage: 20 mg/day
     Route: 065
  2. ESOMEPRAZOLE MAGNESIUM [Suspect]
     Dosage: 20 mg/day
     Route: 065

REACTIONS (2)
  - Vision blurred [Recovered/Resolved]
  - Road traffic accident [Unknown]
